FAERS Safety Report 8580776 (Version 3)
Quarter: 2013Q1

REPORT INFORMATION
  Report Type: Spontaneous
  Country: BR (occurrence: BR)
  Receive Date: 20120525
  Receipt Date: 20130122
  Transmission Date: 20140127
  Serious: Yes (Other)
  Sender: FDA-Public Use
  Company Number: BR-ROCHE-1070597

PATIENT
  Sex: Female

DRUGS (5)
  1. XOLAIR [Suspect]
     Indication: PRODUCT USED FOR UNKNOWN INDICATION
     Route: 065
  2. XOLAIR [Suspect]
     Route: 058
     Dates: start: 20120514
  3. BUSONID [Concomitant]
  4. MOMETASONE FUROATE [Concomitant]
     Route: 065
     Dates: start: 20121220
  5. FOSTAIR [Concomitant]
     Route: 065
     Dates: start: 20121220

REACTIONS (3)
  - Asthma [Recovered/Resolved]
  - Blood immunoglobulin E increased [Recovered/Resolved]
  - Exposure during pregnancy [Unknown]
